FAERS Safety Report 4914009-2 (Version None)
Quarter: 2006Q1

REPORT INFORMATION
  Report Type: 
  Country: None (occurrence: None)
  Receive Date: 20060206
  Receipt Date: 20060125
  Transmission Date: 20060701
  Serious: Yes (Other)
  Sender: FDA-Public Use
  Company Number: 2006BH001248

PATIENT
  Age: 80 Year
  Sex: Female

DRUGS (1)
  1. IMMUNE GLOBULIN INTRAVENOUS (HUMAN) [Suspect]
     Indication: MYASTHENIA GRAVIS
     Dosage: IV
     Route: 042

REACTIONS (2)
  - CEREBROVASCULAR ACCIDENT [None]
  - INFUSION RELATED REACTION [None]
